FAERS Safety Report 14556396 (Version 1)
Quarter: 2018Q1

REPORT INFORMATION
  Report Type: Spontaneous
  Country: IT (occurrence: IT)
  Receive Date: 20180221
  Receipt Date: 20180221
  Transmission Date: 20180509
  Serious: Yes (Death)
  Sender: FDA-Public Use
  Company Number: IT-ACTELION-A-CH2018-167544

PATIENT
  Sex: Male

DRUGS (1)
  1. CARIPUL [Suspect]
     Active Substance: EPOPROSTENOL
     Indication: PULMONARY ARTERIAL HYPERTENSION
     Route: 042

REACTIONS (3)
  - Cardiac failure [Fatal]
  - Pulmonary arterial hypertension [Fatal]
  - Disease progression [Fatal]
